FAERS Safety Report 4727548-4 (Version None)
Quarter: 2005Q3

REPORT INFORMATION
  Report Type: 
  Country: None (occurrence: None)
  Receive Date: 20050728
  Receipt Date: 20050728
  Transmission Date: 20060218
  Serious: Yes (Other)
  Sender: FDA-Public Use
  Company Number: None

PATIENT
  Age: 51 Year
  Sex: Female
  Weight: 99.7913 kg

DRUGS (2)
  1. BENICAR [Suspect]
     Dosage: 1 TABLET   PER DAY
     Dates: start: 20040805, end: 20050621
  2. AVAPRO [Suspect]
     Dosage: 1 TABLET  PER DAY
     Dates: start: 20050621, end: 20050726

REACTIONS (3)
  - PRURITUS [None]
  - VAGINAL DISORDER [None]
  - VAGINAL HAEMORRHAGE [None]
